FAERS Safety Report 18473995 (Version 1)
Quarter: 2020Q4

REPORT INFORMATION
  Report Type: Spontaneous
  Country: ES (occurrence: ES)
  Receive Date: 20201106
  Receipt Date: 20201106
  Transmission Date: 20210114
  Serious: Yes (Life-Threatening, Hospitalization)
  Sender: FDA-Public Use
  Company Number: ES-TEVA-2020-ES-1845086

PATIENT
  Age: 75 Year
  Sex: Male

DRUGS (7)
  1. REPAGLINIDA (1063A) [Concomitant]
     Active Substance: REPAGLINIDE
     Indication: TYPE 2 DIABETES MELLITUS
     Dosage: UNIT DOSE 1MG
     Route: 048
     Dates: start: 20200429, end: 20200503
  2. HIDROXICLOROQUINA SULFATO (2143SU) [Suspect]
     Active Substance: HYDROXYCHLOROQUINE SULFATE
     Indication: COVID-19 PNEUMONIA
     Route: 048
     Dates: start: 20200421, end: 20200426
  3. TOCILIZUMAB (8289A) [Suspect]
     Active Substance: TOCILIZUMAB
     Indication: COVID-19 PNEUMONIA
     Dosage: UNIT DOSE 400MG
     Route: 058
     Dates: start: 20200423, end: 20200423
  4. ZYLORIC 100 MG COMPRIMIDOS, 25 COMPRIMIDOS [Suspect]
     Active Substance: ALLOPURINOL
     Indication: HYPERURICAEMIA
     Dosage: UNIT DOSE 100MG
     Route: 048
     Dates: start: 20111001, end: 20200508
  5. INCRESYNC 25 MG/30 MG COMPRIMIDOS RECUBIERTOS CON PELICULA 28 COMPRIMI [Concomitant]
     Indication: TYPE 2 DIABETES MELLITUS
     Dosage: UNIT DOSE 1DF
     Route: 048
     Dates: start: 20191001, end: 20200428
  6. TAMSULOSINA HIDROCLORURO (2751CH) [Concomitant]
     Active Substance: TAMSULOSIN HYDROCHLORIDE
     Indication: BENIGN PROSTATIC HYPERPLASIA
     Dosage: UNIT DOSE 0.4MG
     Route: 048
     Dates: start: 20111001
  7. PERINDOPRIL (1051A) [Concomitant]
     Indication: HYPERTENSION
     Dosage: UNIT DOSE 2MG
     Route: 048
     Dates: start: 20191001

REACTIONS (1)
  - Drug reaction with eosinophilia and systemic symptoms [Recovered/Resolved]

NARRATIVE: CASE EVENT DATE: 20200429
